FAERS Safety Report 9880843 (Version 1)
Quarter: 2014Q1

REPORT INFORMATION
  Report Type: Spontaneous
  Country: US (occurrence: None)
  Receive Date: 20140206
  Receipt Date: 20140206
  Transmission Date: 20141002
  Serious: No
  Sender: FDA-Public Use
  Company Number: None

PATIENT
  Sex: Female

DRUGS (1)
  1. NICOTINE PATCH [Suspect]
     Indication: SMOKING CESSATION THERAPY

REACTIONS (1)
  - Rash [None]
